FAERS Safety Report 12803140 (Version 2)
Quarter: 2016Q4

REPORT INFORMATION
  Report Type: Spontaneous
  Country: AU (occurrence: AU)
  Receive Date: 20161003
  Receipt Date: 20161014
  Transmission Date: 20170207
  Serious: Yes (Hospitalization, Other)
  Sender: FDA-Public Use
  Company Number: AU-MUNDIPHARMA DS AND PHARMACOVIGILANCE-GBR-2016-0040816

PATIENT
  Age: 77 Year
  Sex: Male
  Weight: 75 kg

DRUGS (7)
  1. TEGRETOL [Concomitant]
     Active Substance: CARBAMAZEPINE
  2. RANITIDINE. [Concomitant]
     Active Substance: RANITIDINE
  3. NATRILIX                           /00340101/ [Concomitant]
     Active Substance: INDAPAMIDE
  4. TWYNSTA [Concomitant]
     Active Substance: AMLODIPINE BESYLATE\TELMISARTAN
  5. DEPTRAN                            /00138002/ [Concomitant]
     Active Substance: DOXEPIN HYDROCHLORIDE
  6. TARGIN [Suspect]
     Active Substance: NALOXONE HYDROCHLORIDE\OXYCODONE HYDROCHLORIDE
     Indication: ARTHRALGIA
     Dosage: 20/10MG (10/5 MG TWICE DAILY)
     Route: 048
     Dates: start: 20160813, end: 20160919
  7. CRESTOR [Concomitant]
     Active Substance: ROSUVASTATIN CALCIUM

REACTIONS (1)
  - Delirium [Recovered/Resolved]

NARRATIVE: CASE EVENT DATE: 20160918
